FAERS Safety Report 5818874-6 (Version None)
Quarter: 2008Q3

REPORT INFORMATION
  Report Type: 
  Country: None (occurrence: None)
  Receive Date: 20080723
  Receipt Date: 20080716
  Transmission Date: 20090109
  Serious: Yes (Hospitalization, Other)
  Sender: FDA-Public Use
  Company Number: US-BRISTOL-MYERS SQUIBB COMPANY-14235642

PATIENT
  Age: 72 Year
  Sex: Male
  Weight: 81 kg

DRUGS (4)
  1. DASATINIB [Suspect]
     Indication: PROSTATE CANCER
     Route: 048
     Dates: start: 20080430
  2. SIMVASTATIN [Concomitant]
  3. OXYCONTIN [Concomitant]
  4. CLONAZEPAM [Concomitant]

REACTIONS (5)
  - ASTHENIA [None]
  - CARDIAC FAILURE CONGESTIVE [None]
  - HYPOXIA [None]
  - LEFT VENTRICULAR DYSFUNCTION [None]
  - WEIGHT DECREASED [None]
